FAERS Safety Report 17746990 (Version 1)
Quarter: 2020Q2

REPORT INFORMATION
  Report Type: Spontaneous
  Country: GB (occurrence: GB)
  Receive Date: 20200505
  Receipt Date: 20200505
  Transmission Date: 20200714
  Serious: Yes (Other)
  Sender: FDA-Public Use
  Company Number: GB-BAXTER-2020BAX009041

PATIENT
  Age: 4 Month
  Sex: Female

DRUGS (10)
  1. CISPLATIN. [Suspect]
     Active Substance: CISPLATIN
     Indication: PRIMITIVE NEUROECTODERMAL TUMOUR
     Dosage: 1 MG/KG, CYCLIC (1 MG/KG/DAY D1-2; AT THREE WEEKLY INTERVALS)
     Route: 065
  2. VINCRISTINE SULFATE. [Suspect]
     Active Substance: VINCRISTINE SULFATE
     Indication: PRIMITIVE NEUROECTODERMAL TUMOUR
     Dosage: 0.05 MG/KG, CYCLIC (D1; AT THREE WEEKLY INTERVALS)
     Route: 065
  3. NIFEDIPINE. [Concomitant]
     Active Substance: NIFEDIPINE
     Indication: HYPERTENSION
     Dosage: 3MG QDS
     Route: 065
  4. CARBOPLATIN. [Suspect]
     Active Substance: CARBOPLATIN
     Dosage: 15 MG/KG, CYCLIC ((D1; AT THREE WEEKLY INTERVALS)
     Route: 065
  5. CYCLOPHOSPHAMIDE INJECTION 1G [Suspect]
     Active Substance: CYCLOPHOSPHAMIDE
     Indication: PRIMITIVE NEUROECTODERMAL TUMOUR
     Dosage: CYCLOPHOSPHAMIDE (3.5 MG/N/) WITH PERIPHERAL BLOOD STEM CELL RESCUE
     Route: 065
  6. ETOPOSIDE. [Suspect]
     Active Substance: ETOPOSIDE
     Indication: PRIMITIVE NEUROECTODERMAL TUMOUR
     Dosage: 5 MG/KG, CYCLIC (5 MG/KG/DAY D1+2; AT THREE WEEKLY INTERVALS)
     Route: 065
  7. CYCLOPHOSPHAMIDE INJECTION 1G [Suspect]
     Active Substance: CYCLOPHOSPHAMIDE
     Dosage: 50 MG/KG, CYCLIC (D1, AT THREE WEEKLY INTERVALS)
     Route: 065
  8. CARBOPLATIN. [Suspect]
     Active Substance: CARBOPLATIN
     Indication: PRIMITIVE NEUROECTODERMAL TUMOUR
     Dosage: 15 MG/KG, CYCLIC ((D1; AT THREE WEEKLY INTERVALS)
     Route: 065
  9. PROCARBAZINE [Suspect]
     Active Substance: PROCARBAZINE
     Indication: PRIMITIVE NEUROECTODERMAL TUMOUR
     Dosage: 4 MG/KG, CYCLIC (4 MG/KG/DAY, D1-7; AT THREE WEEKLY INTERVALS)
     Route: 065
  10. HYDRALAZINE [Concomitant]
     Active Substance: HYDRALAZINE HYDROCHLORIDE
     Indication: HYPERTENSION
     Dosage: 2MG TDS
     Route: 065

REACTIONS (6)
  - Product use in unapproved indication [Unknown]
  - Off label use [Unknown]
  - Malaise [Recovered/Resolved]
  - Staphylococcal sepsis [Recovered/Resolved]
  - Hypertension [Recovered/Resolved]
  - Gastroenteritis cryptosporidial [Recovered/Resolved]
